FAERS Safety Report 6491107-6 (Version None)
Quarter: 2009Q4

REPORT INFORMATION
  Report Type: 
  Country: None (occurrence: None)
  Receive Date: 20091211
  Receipt Date: 20091201
  Transmission Date: 20100525
  Serious: Yes (Other)
  Sender: FDA-Public Use
  Company Number: US-PFIZER INC-2009304855

PATIENT
  Sex: Female
  Weight: 57.9 kg

DRUGS (14)
  1. CYTARABINE [Suspect]
     Indication: ACUTE MYELOID LEUKAEMIA
     Dosage: 1.5 G/M2
     Route: 042
     Dates: start: 20091104
  2. IDARUBICIN HCL [Suspect]
     Indication: ACUTE MYELOID LEUKAEMIA
     Dosage: 12 MG/M2, UNK
     Route: 042
     Dates: start: 20091104
  3. CANCIDAS [Concomitant]
     Dosage: UNK
     Dates: start: 20091101
  4. ONDANSETRON [Concomitant]
     Dosage: UNK
     Dates: start: 20091102, end: 20091104
  5. ALLOPURINOL [Concomitant]
     Dosage: UNK
     Dates: start: 20091101, end: 20091106
  6. METOPROLOL [Concomitant]
     Indication: TACHYCARDIA
     Dosage: UNK
     Dates: start: 20091101
  7. LEVAQUIN [Concomitant]
     Dosage: UNK
     Dates: start: 20091101
  8. PROTONIX [Concomitant]
     Dosage: UNK
     Dates: start: 20091101
  9. VALTREX [Concomitant]
     Dosage: UNK
     Dates: start: 20091101
  10. CYCLOSPORINE [Concomitant]
     Indication: GRAFT VERSUS HOST DISEASE
     Dosage: UNK
     Dates: start: 20091101
  11. MAGNESIUM SULFATE [Concomitant]
     Dosage: UNK
     Dates: start: 20091103, end: 20091106
  12. METHYLPREDNISOLONE [Concomitant]
     Dosage: UNK
     Dates: start: 20091104, end: 20091106
  13. RENAGEL [Concomitant]
     Dosage: UNK
     Dates: start: 20091103, end: 20091105
  14. PREDNISOLONE ACETATE [Concomitant]
     Dosage: UNK
     Dates: start: 20091104, end: 20091108

REACTIONS (3)
  - FEBRILE NEUTROPENIA [None]
  - HYPERBILIRUBINAEMIA [None]
  - OESOPHAGITIS [None]
